FAERS Safety Report 5096384-4 (Version None)
Quarter: 2006Q3

REPORT INFORMATION
  Report Type: 
  Country: None (occurrence: None)
  Receive Date: 20060831
  Receipt Date: 20060822
  Transmission Date: 20061208
  Serious: Yes (Hospitalization)
  Sender: FDA-Public Use
  Company Number: 2006-02211

PATIENT
  Age: 46 Year
  Sex: Male
  Weight: 66.7 kg

DRUGS (2)
  1. VELCADE [Suspect]
     Indication: COLORECTAL CANCER
     Dosage: 10.00 MG, INTRAVENOUS
     Route: 042
     Dates: start: 20060713, end: 20060713
  2. NEULASTA [Concomitant]

REACTIONS (15)
  - ALBUMIN CSF INCREASED [None]
  - AUTONOMIC NERVOUS SYSTEM IMBALANCE [None]
  - CARPAL TUNNEL SYNDROME [None]
  - COORDINATION ABNORMAL [None]
  - DEPRESSION [None]
  - DYSPHAGIA [None]
  - HAEMOGLOBIN DECREASED [None]
  - NERVE INJURY [None]
  - NEUTROPHIL PERCENTAGE INCREASED [None]
  - OESOPHAGEAL DISORDER [None]
  - ORTHOSTATIC HYPOTENSION [None]
  - PERIPHERAL MOTOR NEUROPATHY [None]
  - PERIPHERAL SENSORY NEUROPATHY [None]
  - URINARY RETENTION [None]
  - WHITE BLOOD CELL COUNT INCREASED [None]
